FAERS Safety Report 19032536 (Version 3)
Quarter: 2021Q2

REPORT INFORMATION
  Report Type: Spontaneous
  Country: JP (occurrence: JP)
  Receive Date: 20210319
  Receipt Date: 20210419
  Transmission Date: 20210717
  Serious: Yes (Hospitalization)
  Sender: FDA-Public Use
  Company Number: JP-ELI_LILLY_AND_COMPANY-JP202103004151

PATIENT
  Age: 68 Year
  Sex: Female

DRUGS (9)
  1. MAGNESIUM OXIDE. [Concomitant]
     Active Substance: MAGNESIUM OXIDE
     Dosage: 1500 MG, DAILY
     Route: 048
     Dates: start: 20190409, end: 20191127
  2. POSTERISAN FORTE [ESCHERICHIA COLI;HYDROCORTI [Concomitant]
     Indication: HAEMORRHOIDS
     Dosage: 2 G, BID
     Route: 054
     Dates: start: 20190912, end: 202001
  3. FAMOTIDINE. [Concomitant]
     Active Substance: FAMOTIDINE
     Dosage: 20 MG, OTHER
  4. SALINE [SODIUM CHLORIDE] [Concomitant]
     Active Substance: SODIUM CHLORIDE
  5. CYRAMZA [Suspect]
     Active Substance: RAMUCIRUMAB
     Indication: GASTRIC CANCER STAGE III
     Dosage: 8 MG/KG, CYCLICAL
     Route: 041
     Dates: start: 20190725, end: 20191127
  6. CALONAL [Concomitant]
     Active Substance: ACETAMINOPHEN
     Indication: ABDOMINAL PAIN
     Dosage: 1200 MG, DAILY
     Route: 048
     Dates: start: 20190623, end: 202003
  7. PACLITAXEL. [Concomitant]
     Active Substance: PACLITAXEL
     Indication: GASTRIC CANCER STAGE III
     Dosage: 80 MG/M2, CYCLICAL
     Dates: start: 20190725, end: 20191127
  8. RESTAMIN KOWA [Concomitant]
     Indication: ALLERGY PROPHYLAXIS
     Dosage: 50 MG, DAILY
     Route: 048
     Dates: start: 20191128, end: 20191128
  9. ORGADRONE [DEXAMETHASONE SODIUM PHOSPHATE] [Concomitant]
     Dosage: 3.8 MG, OTHER

REACTIONS (1)
  - Spinal epidural haematoma [Recovered/Resolved]

NARRATIVE: CASE EVENT DATE: 20191207
